FAERS Safety Report 8578486-0 (Version None)
Quarter: 2012Q3

REPORT INFORMATION
  Report Type: 
  Country: None (occurrence: None)
  Receive Date: 20120808
  Receipt Date: 20120731
  Transmission Date: 20120928
  Serious: Yes (Other)
  Sender: FDA-Public Use
  Company Number: US-US-EMD SERONO, INC.-7031541

PATIENT
  Sex: Female
  Weight: 77 kg

DRUGS (4)
  1. REBIF [Suspect]
     Indication: MULTIPLE SCLEROSIS
     Route: 058
     Dates: start: 20010101, end: 20120401
  2. CYMBALTA [Concomitant]
     Indication: DEPRESSION
  3. REQUIP [Concomitant]
     Indication: RESTLESS LEGS SYNDROME
  4. XANAX [Concomitant]
     Indication: NERVOUSNESS

REACTIONS (10)
  - OVARIAN ENLARGEMENT [None]
  - PELVIC MASS [None]
  - ABDOMINAL PAIN UPPER [None]
  - DYSURIA [None]
  - FEELING ABNORMAL [None]
  - BURNING SENSATION [None]
  - POLYP [None]
  - SCOLIOSIS [None]
  - LUMBAR SPINAL STENOSIS [None]
  - CENTRAL NERVOUS SYSTEM LESION [None]
